FAERS Safety Report 16395733 (Version 1)
Quarter: 2019Q2

REPORT INFORMATION
  Report Type: Spontaneous
  Country: JP (occurrence: JP)
  Receive Date: 20190605
  Receipt Date: 20190605
  Transmission Date: 20190711
  Serious: Yes (Life-Threatening, Other)
  Sender: FDA-Public Use
  Company Number: JP-PFIZER INC-2019230166

PATIENT
  Age: 44 Year
  Sex: Female

DRUGS (3)
  1. DOCETAXEL. [Suspect]
     Active Substance: DOCETAXEL
     Indication: OVARIAN CANCER METASTATIC
     Dosage: 70 MG/M2, CYCLIC (DAY 1, THREE CYCLES)
  2. BEVACIZUMAB. [Suspect]
     Active Substance: BEVACIZUMAB
     Indication: OVARIAN CANCER METASTATIC
     Dosage: 15 MG/KG, CYCLIC (THREE CYCLES, ON DAY 1)
  3. CARBOPLATIN. [Suspect]
     Active Substance: CARBOPLATIN
     Indication: OVARIAN CANCER METASTATIC
     Dosage: UNK, CYCLIC (AUC5 ON DAY 1, THREE CYCLES)

REACTIONS (3)
  - Neutrophil count decreased [Unknown]
  - Bone marrow failure [Unknown]
  - Renal impairment [Unknown]
